FAERS Safety Report 26178696 (Version 1)
Quarter: 2025Q4

REPORT INFORMATION
  Report Type: Spontaneous
  Country: GB (occurrence: None)
  Receive Date: 20251219
  Receipt Date: 20251219
  Transmission Date: 20260118
  Serious: Yes (Other)
  Sender: AUROBINDO
  Company Number: GB-MHRA-37857701

PATIENT

DRUGS (5)
  1. DIAZEPAM [Suspect]
     Active Substance: DIAZEPAM
     Indication: Anxiety
     Dosage: 5 MILLIGRAM (PRESCRIBED ON 26TH OF NOVEMBERAFTER TAKING THE TABLET OF WHICH I CUT IN HALF FOR A LOWER DOSAGE)
     Route: 065
  2. Orlanzapine [Concomitant]
     Indication: Product used for unknown indication
     Dosage: UNK
     Route: 065
  3. trammadol? [Concomitant]
     Indication: Product used for unknown indication
     Dosage: UNK
     Route: 065
  4. Duloxatine? [Concomitant]
     Indication: Product used for unknown indication
     Dosage: UNK
     Route: 065
  5. Aripiprasole? [Concomitant]
     Indication: Product used for unknown indication
     Dosage: UNK
     Route: 065

REACTIONS (7)
  - Paralysis [Unknown]
  - Apallic syndrome [Unknown]
  - Skin odour abnormal [Unknown]
  - Vision blurred [Unknown]
  - Toxicity to various agents [Unknown]
  - Tremor [Unknown]
  - Malaise [Unknown]
